FAERS Safety Report 6975402-X (Version None)
Quarter: 2010Q3

REPORT INFORMATION
  Report Type: 
  Country: None (occurrence: None)
  Receive Date: 20100910
  Receipt Date: 20090311
  Transmission Date: 20110219
  Serious: No
  Sender: FDA-Public Use
  Company Number: US-WYE-H08552809

PATIENT
  Sex: Female

DRUGS (4)
  1. PRISTIQ [Suspect]
     Indication: FIBROMYALGIA
     Route: 048
     Dates: start: 20080501, end: 20090101
  2. PRISTIQ [Suspect]
     Dosage: 50 MG EVERY OTHER DAY
     Route: 048
     Dates: start: 20090101, end: 20090201
  3. PRISTIQ [Suspect]
     Dosage: HALF OF A 50 MG TABLET DAILY
     Route: 048
     Dates: start: 20090201, end: 20090302
  4. LYRICA [Concomitant]

REACTIONS (8)
  - CHEST DISCOMFORT [None]
  - CHEST PAIN [None]
  - DRUG INEFFECTIVE FOR UNAPPROVED INDICATION [None]
  - DRUG WITHDRAWAL SYNDROME [None]
  - HEADACHE [None]
  - INSOMNIA [None]
  - NECK PAIN [None]
  - PAIN IN JAW [None]
